FAERS Safety Report 10024492 (Version 1)
Quarter: 2014Q1

REPORT INFORMATION
  Report Type: Spontaneous
  Country: FR (occurrence: FR)
  Receive Date: 20140320
  Receipt Date: 20140320
  Transmission Date: 20141002
  Serious: Yes (Life-Threatening)
  Sender: FDA-Public Use
  Company Number: FR-BAYER-2014-036786

PATIENT
  Age: 41 Year
  Sex: Female

DRUGS (1)
  1. NEXAVAR [Suspect]
     Indication: FIBROMATOSIS
     Dosage: 200 MG, QID
     Route: 048
     Dates: start: 20140214, end: 20140214

REACTIONS (1)
  - Myocardial infarction [Recovered/Resolved]
